FAERS Safety Report 4584393-0 (Version None)
Quarter: 2005Q1

REPORT INFORMATION
  Report Type: 
  Country: None (occurrence: None)
  Receive Date: 20050125
  Receipt Date: 20041112
  Transmission Date: 20050727
  Serious: Yes (Hospitalization, Other)
  Sender: FDA-Public Use
  Company Number: USA030843786

PATIENT
  Age: 83 Year
  Sex: Female
  Weight: 55 kg

DRUGS (18)
  1. EVISTA [Suspect]
     Dates: start: 20020101, end: 20030901
  2. FORTEO [Suspect]
     Indication: FRACTURE
     Dosage: 20 UG DAY
     Dates: start: 20030728, end: 20041007
  3. PLAVIX [Concomitant]
  4. NORVASC [Concomitant]
  5. TENORMIN [Concomitant]
  6. LANOXIN [Concomitant]
  7. COUMADIN [Concomitant]
  8. ALDACTONE [Concomitant]
  9. VITAMINS [Concomitant]
  10. CALCIUM GLUCONATE [Concomitant]
  11. ACTONEL [Concomitant]
  12. ASPIRIN [Concomitant]
  13. ALDACTONE [Concomitant]
  14. AZOPT [Concomitant]
  15. TEARS [Concomitant]
  16. OCCUPRESS (CARTEOLOL HYDROCHLORIDE) [Concomitant]
  17. XALATAN [Concomitant]
  18. MULTIVITAMIN [Concomitant]

REACTIONS (25)
  - ASTHENIA [None]
  - BACK PAIN [None]
  - BLOOD PARATHYROID HORMONE INCREASED [None]
  - COAGULOPATHY [None]
  - COLLAGEN DISORDER [None]
  - CONSTIPATION [None]
  - CONTUSION [None]
  - CORONARY ARTERY OCCLUSION [None]
  - CREPITATIONS [None]
  - DIZZINESS [None]
  - FATIGUE [None]
  - FEELING ABNORMAL [None]
  - FRACTURE [None]
  - HEART RATE IRREGULAR [None]
  - INJECTION SITE ERYTHEMA [None]
  - INJECTION SITE HAEMORRHAGE [None]
  - INJECTION SITE MASS [None]
  - INJECTION SITE PAIN [None]
  - INJECTION SITE REACTION [None]
  - MOBILITY DECREASED [None]
  - NASOPHARYNGITIS [None]
  - NECK PAIN [None]
  - TRANSIENT ISCHAEMIC ATTACK [None]
  - VEIN PAIN [None]
  - VITAMIN D DECREASED [None]
